FAERS Safety Report 6474425-7 (Version None)
Quarter: 2009Q4

REPORT INFORMATION
  Report Type: 
  Country: None (occurrence: None)
  Receive Date: 20091204
  Receipt Date: 20091130
  Transmission Date: 20100525
  Serious: Yes (Other)
  Sender: FDA-Public Use
  Company Number: US-ELI_LILLY_AND_COMPANY-US200911007291

PATIENT
  Sex: Male

DRUGS (2)
  1. HUMALOG [Suspect]
     Indication: DIABETES MELLITUS
     Dosage: UNK, 3/D
     Dates: start: 20070101
  2. LANTUS [Concomitant]
     Dosage: UNK, AS NEEDED

REACTIONS (3)
  - DIALYSIS [None]
  - INCORRECT STORAGE OF DRUG [None]
  - WRONG TECHNIQUE IN DRUG USAGE PROCESS [None]
